FAERS Safety Report 8032504-7 (Version None)
Quarter: 2011Q4

REPORT INFORMATION
  Report Type: 
  Country: None (occurrence: None)
  Receive Date: 20111223
  Receipt Date: 20111216
  Transmission Date: 20120403
  Serious: Yes (Hospitalization, Other)
  Sender: FDA-Public Use
  Company Number: ACO_22293_2011

PATIENT
  Age: 70 Year
  Sex: Female
  Weight: 74.8 kg

DRUGS (17)
  1. HYDROCHLOROTHIAZIDE [Concomitant]
  2. ERGOCALCIFEROL [Concomitant]
  3. ENTOCORT EC [Concomitant]
  4. REQUIP [Concomitant]
  5. PLAVIX [Concomitant]
  6. LEVOXYL [Concomitant]
  7. CLONAZEPAM [Concomitant]
  8. AMPYRA [Suspect]
     Indication: GAIT DISTURBANCE
     Dosage: 10 MG, Q 12 HRS, ORAL, 10 MG, QD, ORAL, 10 MG, Q 12 HRS, ORAL
     Route: 048
     Dates: start: 20110301, end: 20110311
  9. AMPYRA [Suspect]
     Indication: GAIT DISTURBANCE
     Dosage: 10 MG, Q 12 HRS, ORAL, 10 MG, QD, ORAL, 10 MG, Q 12 HRS, ORAL
     Route: 048
     Dates: start: 20110201, end: 20110201
  10. AMPYRA [Suspect]
     Indication: GAIT DISTURBANCE
     Dosage: 10 MG, Q 12 HRS, ORAL, 10 MG, QD, ORAL, 10 MG, Q 12 HRS, ORAL
     Route: 048
     Dates: start: 20110201, end: 20110301
  11. BACLOFEN [Concomitant]
  12. POTASSIUM /00031402/ (POTASSIUM CHLORIDE) [Concomitant]
  13. CYMBALTA [Concomitant]
  14. REBIF [Concomitant]
  15. REBIF [Concomitant]
  16. LOSARTAN POTASSIUM [Concomitant]
  17. TYLENOL W/CODEINE (CODEINE PHOSPHATE, PARACETAMOL) [Concomitant]

REACTIONS (21)
  - DIZZINESS [None]
  - HYPERVENTILATION [None]
  - AGITATION [None]
  - HYPERTENSION [None]
  - TREMOR [None]
  - FEELING HOT [None]
  - MENTAL STATUS CHANGES [None]
  - INJECTION SITE ERYTHEMA [None]
  - NAUSEA [None]
  - CONTUSION [None]
  - NEUROMYOPATHY [None]
  - PROCTALGIA [None]
  - CONFUSIONAL STATE [None]
  - ANXIETY [None]
  - GRIMACING [None]
  - CONVULSION [None]
  - ABDOMINAL PAIN [None]
  - DYSKINESIA [None]
  - FATIGUE [None]
  - ADVERSE DRUG REACTION [None]
  - INAPPROPRIATE SCHEDULE OF DRUG ADMINISTRATION [None]
